FAERS Safety Report 4343487-5 (Version None)
Quarter: 2004Q2

REPORT INFORMATION
  Report Type: 
  Country: None (occurrence: None)
  Receive Date: 20040421
  Receipt Date: 20040421
  Transmission Date: 20050107
  Serious: Yes (Other)
  Sender: FDA-Public Use
  Company Number: None

PATIENT
  Age: 63 Year
  Sex: Male
  Weight: 72.5755 kg

DRUGS (11)
  1. ALIMTA [Suspect]
     Indication: MESOTHELIOMA
     Dosage: 500 MG/M2 Q 3 WK
     Dates: start: 20021220, end: 20040218
  2. DECADRON [Concomitant]
  3. FOLIC ACID [Concomitant]
  4. CELEBREX [Concomitant]
  5. OXY IR [Concomitant]
  6. DURAGESIC [Concomitant]
  7. NORCO [Concomitant]
  8. B12 [Concomitant]
  9. COMPAZINE [Concomitant]
  10. ATIVAN [Concomitant]
  11. PRILOSEC [Concomitant]

REACTIONS (4)
  - BACK PAIN [None]
  - BREATH SOUNDS DECREASED [None]
  - MALIGNANT NEOPLASM PROGRESSION [None]
  - MESOTHELIOMA [None]
